FAERS Safety Report 15539717 (Version 1)
Quarter: 2018Q4

REPORT INFORMATION
  Report Type: Spontaneous
  Country: FR (occurrence: FR)
  Receive Date: 20181023
  Receipt Date: 20181023
  Transmission Date: 20190205
  Serious: Yes (Other)
  Sender: FDA-Public Use
  Company Number: FR-ROCHE-2203547

PATIENT
  Age: 60 Year
  Sex: Female

DRUGS (1)
  1. MABTHERA [Suspect]
     Active Substance: RITUXIMAB
     Indication: B-CELL LYMPHOMA
     Route: 058
     Dates: start: 20180405, end: 20180731

REACTIONS (3)
  - Skin mass [Recovering/Resolving]
  - Macule [Recovering/Resolving]
  - Injection site macule [Recovering/Resolving]

NARRATIVE: CASE EVENT DATE: 20180415
